FAERS Safety Report 9959387 (Version 1)
Quarter: 2014Q1

REPORT INFORMATION
  Report Type: Spontaneous
  Country: US (occurrence: None)
  Receive Date: 20140228
  Receipt Date: 20140228
  Transmission Date: 20141002
  Serious: No
  Sender: FDA-Public Use
  Company Number: None

PATIENT
  Age: 39 Year
  Sex: Female

DRUGS (1)
  1. ENOXAPARIN 80 MG SYRINGE WINTHROP PHARM [Suspect]
     Dosage: INJECT 0.8 ML (80 MG) UNDER THE SKIN TWICE A DAY
     Dates: start: 20140124

REACTIONS (5)
  - Injection site bruising [None]
  - Injection site mass [None]
  - Wound [None]
  - Secretion discharge [None]
  - Pain [None]
